FAERS Safety Report 10464084 (Version 1)
Quarter: 2014Q3

REPORT INFORMATION
  Report Type: Spontaneous
  Country: IT (occurrence: GB)
  Receive Date: 20140919
  Receipt Date: 20140919
  Transmission Date: 20150326
  Serious: Yes (Other)
  Sender: FDA-Public Use
  Company Number: GB-FRI-1000070758

PATIENT
  Age: 87 Year
  Sex: Male

DRUGS (1)
  1. NEBIVOLOL [Suspect]
     Active Substance: NEBIVOLOL
     Indication: MYOCARDIAL INFARCTION
     Dosage: 1 IN 1 DAY
     Dates: start: 20140819, end: 20140831

REACTIONS (1)
  - Nightmare [Unknown]

NARRATIVE: CASE EVENT DATE: 20140819
